FAERS Safety Report 8438979-3 (Version None)
Quarter: 2012Q2

REPORT INFORMATION
  Report Type: 
  Country: None (occurrence: None)
  Receive Date: 20120323
  Receipt Date: 20110524
  Transmission Date: 20120825
  Serious: Yes (Other)
  Sender: FDA-Public Use
  Company Number: 163-21880-11053511

PATIENT
  Age: 74 Year
  Sex: Male

DRUGS (22)
  1. REVLIMID [Suspect]
     Indication: MYELODYSPLASTIC SYNDROME
     Dosage: 10 MG, 1 IN 1 D, PO, 5 MG, 1 IN 1 D, PO, 10-5-15-10MG, DAILY, PO, 5 MG, 1 IN 1 D, PO
     Route: 048
     Dates: start: 20080101, end: 20100101
  2. REVLIMID [Suspect]
     Indication: MYELODYSPLASTIC SYNDROME
     Dosage: 10 MG, 1 IN 1 D, PO, 5 MG, 1 IN 1 D, PO, 10-5-15-10MG, DAILY, PO, 5 MG, 1 IN 1 D, PO
     Route: 048
     Dates: start: 20100713, end: 20100928
  3. REVLIMID [Suspect]
     Indication: MYELODYSPLASTIC SYNDROME
     Dosage: 10 MG, 1 IN 1 D, PO, 5 MG, 1 IN 1 D, PO, 10-5-15-10MG, DAILY, PO, 5 MG, 1 IN 1 D, PO
     Route: 048
     Dates: start: 20060601, end: 20060101
  4. REVLIMID [Suspect]
     Indication: MYELODYSPLASTIC SYNDROME
     Dosage: 10 MG, 1 IN 1 D, PO, 5 MG, 1 IN 1 D, PO, 10-5-15-10MG, DAILY, PO, 5 MG, 1 IN 1 D, PO
     Route: 048
     Dates: start: 20060401, end: 20060101
  5. EXELON [Concomitant]
  6. WARFARIN SODIUM [Concomitant]
  7. FLOMAX [Concomitant]
  8. MIRALAX [Concomitant]
  9. TADALAFIL [Concomitant]
  10. FERROUS SULFATE TAB [Concomitant]
  11. LEVOTHYROXINE SODIUM [Concomitant]
  12. DIGOXIN [Concomitant]
  13. DILTIAZEM HCL [Concomitant]
  14. PROCRIT [Concomitant]
  15. METOLAZONE [Concomitant]
  16. LASIX [Concomitant]
  17. PRILOSEC [Concomitant]
  18. KLOR-CON [Concomitant]
  19. AMIODARONE HCL [Concomitant]
  20. COLACE (DOCUSATE SODIUM) [Concomitant]
  21. COREG [Concomitant]
  22. BLOOD (BLOOD AND RELATED PRODUCTS) [Concomitant]

REACTIONS (4)
  - NEUTROPENIA [None]
  - NO THERAPEUTIC RESPONSE [None]
  - PANCYTOPENIA [None]
  - THROMBOCYTOPENIA [None]
